FAERS Safety Report 9518549 (Version 1)
Quarter: 2013Q3

REPORT INFORMATION
  Report Type: Report from Study
  Country: US (occurrence: US)
  Receive Date: 20130912
  Receipt Date: 20130912
  Transmission Date: 20140515
  Serious: Yes (Hospitalization)
  Sender: FDA-Public Use
  Company Number: PHEH2013US018804

PATIENT
  Sex: Female

DRUGS (9)
  1. GILENYA [Suspect]
     Indication: MULTIPLE SCLEROSIS
     Dosage: 0.5 MG, QD
     Route: 048
     Dates: start: 201203
  2. PRISTIQ [Concomitant]
     Dosage: 50 MG, UNK
     Route: 048
  3. SINEMET [Concomitant]
     Dosage: CARBIDOPA: 10 MG, LEVODOPA: 100 MG
  4. GABAPENTIN [Concomitant]
     Dosage: 300 MG, UNK
     Route: 048
  5. AMBIEN [Concomitant]
     Dosage: 12.5 MG, UNK
     Route: 048
  6. DIOVAN [Concomitant]
     Dosage: 320 MG, UNK
     Route: 048
  7. BACLOFEN [Concomitant]
     Dosage: 20 MG, UNK
     Route: 048
  8. LEVOTHYROXINE [Concomitant]
  9. RESTASIS [Concomitant]

REACTIONS (5)
  - Fatigue [Unknown]
  - Anxiety [Unknown]
  - Blood cholesterol increased [Unknown]
  - Tremor [Unknown]
  - Headache [Unknown]
